FAERS Safety Report 10680669 (Version 2)
Quarter: 2015Q1

REPORT INFORMATION
  Report Type: Spontaneous
  Country: US (occurrence: US)
  Receive Date: 20141229
  Receipt Date: 20150106
  Transmission Date: 20150720
  Serious: Yes (Hospitalization, Other)
  Sender: FDA-Public Use
  Company Number: US-SA-2014SA118949

PATIENT
  Age: 59 Year
  Sex: Female

DRUGS (13)
  1. PLAVIX [Suspect]
     Active Substance: CLOPIDOGREL BISULFATE
     Indication: CEREBROVASCULAR ACCIDENT
     Route: 048
  2. TOBRADEX [Concomitant]
     Active Substance: DEXAMETHASONE\TOBRAMYCIN
     Dosage: ONE DROP RIGHT EYE
  3. HUMALOG [Concomitant]
     Active Substance: INSULIN LISPRO
  4. PLAVIX [Suspect]
     Active Substance: CLOPIDOGREL BISULFATE
     Indication: CEREBROVASCULAR ACCIDENT
     Route: 048
     Dates: start: 20071119, end: 20091104
  5. ZYPREXA [Concomitant]
     Active Substance: OLANZAPINE
  6. DURAGESIC [Concomitant]
     Active Substance: FENTANYL
     Dosage: 1 PATCH Q.72 HOUR
  7. SIMVASTATIN. [Concomitant]
     Active Substance: SIMVASTATIN
  8. LUMIGAN [Concomitant]
     Active Substance: BIMATOPROST
     Dosage: 0.3 % RIGHT EYE AT BED TIME.
  9. AZOPT [Concomitant]
     Active Substance: BRINZOLAMIDE
     Dosage: 1 % ONE DROP
  10. NORVASC [Concomitant]
     Active Substance: AMLODIPINE BESYLATE
  11. LEXAPRO [Concomitant]
     Active Substance: ESCITALOPRAM OXALATE
  12. COUMADIN [Concomitant]
     Active Substance: WARFARIN SODIUM
     Dates: start: 200710, end: 200812
  13. VITAMIN D [Concomitant]
     Active Substance: CHOLECALCIFEROL
     Dosage: DOSE:50000 UNIT(S)

REACTIONS (14)
  - Gastrointestinal haemorrhage [Recovering/Resolving]
  - Haematemesis [Recovering/Resolving]
  - Nausea [Recovering/Resolving]
  - Blindness [Not Recovered/Not Resolved]
  - Cerebral haemorrhage [Unknown]
  - Melaena [Recovering/Resolving]
  - Gingival bleeding [Unknown]
  - International normalised ratio increased [None]
  - Paralysis [Unknown]
  - Eye haemorrhage [Not Recovered/Not Resolved]
  - Vomiting [Recovered/Resolved]
  - Urinary tract infection [Recovering/Resolving]
  - Haemoglobin decreased [None]
  - Haematocrit decreased [None]

NARRATIVE: CASE EVENT DATE: 2008
